FAERS Safety Report 8935998 (Version 1)
Quarter: 2012Q4

REPORT INFORMATION
  Report Type: Spontaneous
  Country: US (occurrence: None)
  Receive Date: 20121128
  Receipt Date: 20121128
  Transmission Date: 20130627
  Serious: Yes (Hospitalization)
  Sender: FDA-Public Use
  Company Number: None

PATIENT
  Age: 57 Year
  Sex: Male
  Weight: 90.3 kg

DRUGS (6)
  1. CILASTATN\IMIPENEM [Suspect]
     Indication: INTERVERTEBRAL DISCITIS
     Route: 042
     Dates: start: 20121014, end: 20121031
  2. CILASTATN\IMIPENEM [Suspect]
     Indication: OSTEOMYELITIS
     Route: 042
     Dates: start: 20121014, end: 20121031
  3. CILASTATN\IMIPENEM [Suspect]
     Indication: EPIDURAL ABSCESS
     Route: 042
     Dates: start: 20121014, end: 20121031
  4. CEFTRIAXONE [Suspect]
     Indication: INTERVERTEBRAL DISCITIS
     Route: 042
     Dates: start: 20121010, end: 20121030
  5. CEFTRIAXONE [Suspect]
     Indication: OSTEOMYELITIS
     Route: 042
     Dates: start: 20121010, end: 20121030
  6. CEFTRIAXONE [Suspect]
     Indication: EPIDURAL ABSCESS
     Route: 042
     Dates: start: 20121010, end: 20121030

REACTIONS (8)
  - Paraesthesia [None]
  - Muscular weakness [None]
  - Mental status changes [None]
  - Diarrhoea [None]
  - Clostridium test positive [None]
  - Disseminated intravascular coagulation [None]
  - Renal failure acute [None]
  - Hypotension [None]
